FAERS Safety Report 14675350 (Version 1)
Quarter: 2018Q1

REPORT INFORMATION
  Report Type: Spontaneous
  Country: US (occurrence: US)
  Receive Date: 20180323
  Receipt Date: 20180323
  Transmission Date: 20180509
  Serious: No
  Sender: FDA-Public Use
  Company Number: US-BAYER-2018-056254

PATIENT
  Age: 88 Year
  Sex: Female

DRUGS (4)
  1. CLARITIN [Suspect]
     Active Substance: LORATADINE
     Indication: SEASONAL ALLERGY
     Dosage: 1 DF, QD; 1 TABLET EVERY 24 HOURS BY MOUTH;
     Route: 048
  2. MUCINEX [Concomitant]
     Active Substance: GUAIFENESIN
  3. APIXABAN [Concomitant]
     Active Substance: APIXABAN
     Route: 048
  4. COREG [Concomitant]
     Active Substance: CARVEDILOL
     Dosage: UNK DF, UNK

REACTIONS (1)
  - Incorrect dose administered [Recovered/Resolved]

NARRATIVE: CASE EVENT DATE: 20180321
